FAERS Safety Report 9603066 (Version 2)
Quarter: 2013Q4

REPORT INFORMATION
  Report Type: Spontaneous
  Country: AU (occurrence: AU)
  Receive Date: 20131007
  Receipt Date: 20131104
  Transmission Date: 20140711
  Serious: Yes (Life-Threatening)
  Sender: FDA-Public Use
  Company Number: AU-BRISTOL-MYERS SQUIBB COMPANY-19455351

PATIENT
  Age: 71 Year
  Sex: Female

DRUGS (16)
  1. ONGLYZA TABS [Suspect]
  2. ASTRIX [Concomitant]
  3. ATACAND [Concomitant]
  4. DITROPAN [Concomitant]
  5. FERRUM HAUSMANN [Concomitant]
  6. GLUCOSAMINE [Concomitant]
     Dosage: CAPSULE
  7. LIPITOR [Concomitant]
  8. MAGMIN [Concomitant]
  9. MAXOLON [Concomitant]
     Dosage: TABS
  10. MELIZIDE [Concomitant]
     Dosage: TABS
  11. METFORMIN HCL [Concomitant]
  12. OSTELIN [Concomitant]
     Dosage: 1DF:2000 UNITS NOS?CAPSULE
  13. PANADOL [Concomitant]
  14. PANAMAX [Concomitant]
     Dosage: TABS
  15. PARIET [Concomitant]
  16. SYSTANE [Concomitant]
     Dosage: EYE DROPS?4% DAILY

REACTIONS (1)
  - Pancreatitis [Unknown]
